FAERS Safety Report 7629175-8 (Version None)
Quarter: 2011Q3

REPORT INFORMATION
  Report Type: 
  Country: None (occurrence: None)
  Receive Date: 20110722
  Receipt Date: 20110718
  Transmission Date: 20111222
  Serious: Yes (Death, Hospitalization, Other)
  Sender: FDA-Public Use
  Company Number: PHHY2011IT50549

PATIENT
  Sex: Female

DRUGS (5)
  1. MINULET [Concomitant]
  2. EXJADE [Suspect]
     Indication: CONGENITAL APLASTIC ANAEMIA
     Dosage: 15 MG/KG, DAILY
     Route: 048
     Dates: start: 20110512, end: 20110530
  3. LEVOTHYROXINE SODIUM [Concomitant]
     Dosage: 25 UG, UNK
  4. EXJADE [Suspect]
     Indication: IRON OVERLOAD
     Dosage: 22 MG/KG, DAILY
     Route: 048
     Dates: start: 20110531, end: 20110601
  5. LEVOFLOXACIN [Concomitant]

REACTIONS (21)
  - PYREXIA [None]
  - ASTHENIA [None]
  - RENAL FAILURE ACUTE [None]
  - EPSTEIN-BARR VIRAEMIA [None]
  - MALAISE [None]
  - ACUTE RESPIRATORY DISTRESS SYNDROME [None]
  - LUNG INFILTRATION [None]
  - BONE MARROW FAILURE [None]
  - LEUKOPENIA [None]
  - SEPTIC SHOCK [None]
  - PULMONARY CONGESTION [None]
  - SEPSIS [None]
  - DIARRHOEA [None]
  - DEHYDRATION [None]
  - HEPATIC FUNCTION ABNORMAL [None]
  - DEATH [None]
  - PANCYTOPENIA [None]
  - MULTI-ORGAN FAILURE [None]
  - PNEUMONIA [None]
  - NEUTROPENIA [None]
  - COAGULOPATHY [None]
